FAERS Safety Report 5950790-1 (Version None)
Quarter: 2008Q4

REPORT INFORMATION
  Report Type: 
  Country: None (occurrence: None)
  Receive Date: 20081112
  Receipt Date: 20081107
  Transmission Date: 20090506
  Serious: Yes (Death)
  Sender: FDA-Public Use
  Company Number: GB-B.I. PHARMACEUTICALS,INC./RIDGEFIELD-2008-UK-01611UK

PATIENT
  Age: 74 Year
  Sex: Male

DRUGS (13)
  1. SPIRIVA [Suspect]
     Indication: CHRONIC OBSTRUCTIVE PULMONARY DISEASE
     Dates: start: 20080808, end: 20080925
  2. ALBUTEROL SULFATE [Concomitant]
     Indication: RESPIRATORY DISORDER
     Route: 055
  3. SERETIDE [Concomitant]
     Indication: RESPIRATORY DISORDER
     Route: 055
  4. SIMVASTIN [Concomitant]
     Dosage: 40MG
     Route: 048
  5. RAMIPRIL [Concomitant]
     Dosage: 10MG
     Route: 048
  6. FUROSEMIDE [Concomitant]
     Dosage: 40MG
     Route: 048
  7. AMLODIPINE [Concomitant]
     Dosage: 10MG
     Route: 048
  8. XISMOX [Concomitant]
     Dosage: 60MG
     Route: 048
  9. ASPIRIN [Concomitant]
     Dosage: 75MG
     Route: 048
  10. NOVOLOG MIX 70/30 [Concomitant]
     Route: 058
  11. METFORMIN HCL [Concomitant]
     Dosage: 1500MG
     Route: 048
  12. SODIUM PICOSULPHATE [Concomitant]
     Dosage: 2.5MG
  13. MONTELUKAST SODIUM [Concomitant]
     Dosage: 10MG
     Route: 048

REACTIONS (1)
  - MYOCARDIAL INFARCTION [None]
